FAERS Safety Report 15524433 (Version 1)
Quarter: 2018Q4

REPORT INFORMATION
  Report Type: Spontaneous
  Country: US (occurrence: US)
  Receive Date: 20181018
  Receipt Date: 20181018
  Transmission Date: 20190205
  Serious: No
  Sender: FDA-Public Use
  Company Number: US-PFIZER INC-2018417449

PATIENT
  Sex: Female

DRUGS (3)
  1. LYRICA [Suspect]
     Active Substance: PREGABALIN
     Dosage: 200 MG, 2X/DAY
  2. LYRICA [Suspect]
     Active Substance: PREGABALIN
     Dosage: 400 MG, UNK (A MONTH OR A DAY)
  3. LYRICA [Suspect]
     Active Substance: PREGABALIN
     Dosage: 100 MG, UNK

REACTIONS (7)
  - Insomnia [Unknown]
  - Withdrawal syndrome [Unknown]
  - Cold sweat [Unknown]
  - Hypersomnia [Unknown]
  - Hyperhidrosis [Unknown]
  - Intentional product use issue [Unknown]
  - Nausea [Unknown]
